FAERS Safety Report 10342669 (Version 1)
Quarter: 2014Q3

REPORT INFORMATION
  Report Type: Spontaneous
  Country: CH (occurrence: CH)
  Receive Date: 20140725
  Receipt Date: 20140725
  Transmission Date: 20150326
  Serious: Yes (Hospitalization, Disabling)
  Sender: FDA-Public Use
  Company Number: CH-ASTRAZENECA-2014SE52422

PATIENT
  Age: 51 Year
  Sex: Female
  Weight: 98 kg

DRUGS (18)
  1. DORMICUM [Concomitant]
     Active Substance: MIDAZOLAM\MIDAZOLAM HYDROCHLORIDE
     Indication: ANAESTHESIA PROCEDURE
     Route: 040
     Dates: start: 20140430, end: 20140430
  2. CARBOSTESIN WITH ADRENALIN [Suspect]
     Active Substance: BUPIVACAINE HYDROCHLORIDE\EPINEPHRINE BITARTRATE
     Indication: EPIDURAL ANAESTHESIA
     Dosage: 5 ML TOTAL
     Route: 008
     Dates: start: 20140430, end: 20140430
  3. CARBOSTESIN WITH ADRENALIN [Suspect]
     Active Substance: BUPIVACAINE HYDROCHLORIDE\EPINEPHRINE BITARTRATE
     Indication: SPINAL ANAESTHESIA
     Dosage: BUPIVACAINE 13 MG FOR SPINAL ANESTHESIA
     Route: 029
     Dates: start: 20140430, end: 20140430
  4. CHIROCAINE [Suspect]
     Active Substance: LEVOBUPIVACAINE HYDROCHLORIDE
     Indication: EPIDURAL ANAESTHESIA
     Route: 008
     Dates: start: 20140430, end: 20140501
  5. ZINACEF [Concomitant]
     Active Substance: CEFUROXIME SODIUM
     Indication: ANTIBIOTIC PROPHYLAXIS
     Dosage: 1.5 G TOTAL
     Route: 041
     Dates: start: 20140430, end: 20140430
  6. FRAXIPARINE [Concomitant]
     Active Substance: NADROPARIN CALCIUM
     Indication: THROMBOSIS PROPHYLAXIS
     Route: 058
     Dates: start: 20140430, end: 20140502
  7. DISOPRIVAN [Concomitant]
     Active Substance: PROPOFOL
     Indication: ANAESTHESIA PROCEDURE
     Route: 041
     Dates: start: 20140430, end: 20140430
  8. TORA-DOL [Concomitant]
     Active Substance: KETOROLAC TROMETHAMINE
     Indication: POSTOPERATIVE ANALGESIA
     Dosage: 30 MG TOTAL
     Route: 040
     Dates: start: 20140430, end: 20140430
  9. NEXIUM [Concomitant]
     Active Substance: ESOMEPRAZOLE MAGNESIUM
     Route: 048
     Dates: start: 20140430, end: 20140503
  10. LIDOCAIN CO2 SINTETIC [Suspect]
     Active Substance: LIDOCAINE
     Indication: EPIDURAL ANAESTHESIA
     Dosage: 4 ML TOTAL
     Route: 008
     Dates: start: 20140430, end: 20140430
  11. EPHEDRIN [Concomitant]
     Active Substance: EPHEDRINE HYDROCHLORIDE
     Route: 042
     Dates: start: 20140430, end: 20140430
  12. FERINJECT [Concomitant]
     Active Substance: FERRIC CARBOXYMALTOSE
     Dosage: 500 MG TOTAL
     Route: 041
     Dates: start: 20140430, end: 20140430
  13. DAFALGAN [Concomitant]
     Active Substance: ACETAMINOPHEN
     Indication: POSTOPERATIVE ANALGESIA
     Route: 048
     Dates: start: 20140430, end: 20140514
  14. CARBOSTESIN WITH ADRENALIN [Suspect]
     Active Substance: BUPIVACAINE HYDROCHLORIDE\EPINEPHRINE BITARTRATE
     Indication: SPINAL ANAESTHESIA
     Dosage: 5 ML TOTAL
     Route: 008
     Dates: start: 20140430, end: 20140430
  15. CARBOSTESIN WITH ADRENALIN [Suspect]
     Active Substance: BUPIVACAINE HYDROCHLORIDE\EPINEPHRINE BITARTRATE
     Indication: EPIDURAL ANAESTHESIA
     Dosage: BUPIVACAINE 13 MG FOR SPINAL ANESTHESIA
     Route: 029
     Dates: start: 20140430, end: 20140430
  16. FENTANYL. [Suspect]
     Active Substance: FENTANYL
     Indication: ANAESTHESIA PROCEDURE
     Route: 029
     Dates: start: 20140430, end: 20140501
  17. CYKLOKAPRON [Concomitant]
     Active Substance: TRANEXAMIC ACID
     Indication: HAEMORRHAGE PROPHYLAXIS
     Dosage: 1 G TOTAL
     Route: 048
     Dates: start: 20140430, end: 20140430
  18. IRFEN [Concomitant]
     Active Substance: IBUPROFEN
     Indication: POSTOPERATIVE ANALGESIA
     Route: 048
     Dates: start: 20140430, end: 20140503

REACTIONS (4)
  - Anaesthetic complication [Not Recovered/Not Resolved]
  - Myelitis [Not Recovered/Not Resolved]
  - Arachnoiditis [Not Recovered/Not Resolved]
  - Paraplegia [Not Recovered/Not Resolved]

NARRATIVE: CASE EVENT DATE: 20140430
